FAERS Safety Report 11944553 (Version 2)
Quarter: 2016Q1

REPORT INFORMATION
  Report Type: Spontaneous
  Country: JP (occurrence: JP)
  Receive Date: 20160125
  Receipt Date: 20160202
  Transmission Date: 20160526
  Serious: Yes (Hospitalization)
  Sender: FDA-Public Use
  Company Number: PHJP2016JP001510

PATIENT
  Age: 61 Year
  Sex: Male

DRUGS (1)
  1. AMN107 [Suspect]
     Active Substance: NILOTINIB
     Indication: CHRONIC MYELOID LEUKAEMIA
     Route: 048

REACTIONS (4)
  - Second primary malignancy [Unknown]
  - Lung adenocarcinoma [Unknown]
  - Lung adenocarcinoma recurrent [Recovering/Resolving]
  - Gene mutation identification test positive [Unknown]
